FAERS Safety Report 13999330 (Version 2)
Quarter: 2017Q4

REPORT INFORMATION
  Report Type: Spontaneous
  Country: US (occurrence: US)
  Receive Date: 20170922
  Receipt Date: 20171201
  Transmission Date: 20180321
  Serious: Yes (Hospitalization, Other)
  Sender: FDA-Public Use
  Company Number: US-COVIS PHARMA B.V.-2017COV00352

PATIENT
  Age: 38 Year
  Sex: Male
  Weight: 32.65 kg

DRUGS (8)
  1. KEPPRA [Concomitant]
     Active Substance: LEVETIRACETAM
     Dosage: 15 ML, 2X/DAY
     Dates: start: 201406
  2. GABAPENTIN. [Concomitant]
     Active Substance: GABAPENTIN
     Dosage: 5 ML, 2X/DAY
     Dates: start: 201403
  3. TOPAMAX [Concomitant]
     Active Substance: TOPIRAMATE
  4. NEXIUM [Suspect]
     Active Substance: ESOMEPRAZOLE MAGNESIUM
     Indication: GASTROOESOPHAGEAL REFLUX DISEASE
     Dosage: 40 MG, UNK
     Route: 048
     Dates: start: 201708
  5. CLARITIN [Concomitant]
     Active Substance: LORATADINE
     Dosage: 10 MG, UNK
  6. PRILOSEC [Suspect]
     Active Substance: OMEPRAZOLE MAGNESIUM
     Route: 048
  7. NEXIUM [Suspect]
     Active Substance: ESOMEPRAZOLE MAGNESIUM
     Indication: ULCER
     Dosage: 20 MG, 1X/DAY
     Route: 048
     Dates: start: 2014
  8. METOPROLOL TARTRATE. [Suspect]
     Active Substance: METOPROLOL TARTRATE
     Indication: HYPERTENSION
     Dosage: 75 MG, 2X/DAY
     Route: 048
     Dates: start: 201401

REACTIONS (11)
  - Constipation [Unknown]
  - Acute respiratory distress syndrome [Recovered/Resolved]
  - Nephrolithiasis [Recovered/Resolved]
  - Dyspnoea [Recovered/Resolved]
  - Drug effect decreased [Unknown]
  - Pain [Unknown]
  - Respiratory distress [Recovered/Resolved]
  - Staphylococcal infection [Recovered/Resolved]
  - Respiratory tract infection [Unknown]
  - Klebsiella infection [Recovered/Resolved]
  - Proteus infection [Recovered/Resolved]

NARRATIVE: CASE EVENT DATE: 201401
